FAERS Safety Report 5130153-1 (Version None)
Quarter: 2006Q4

REPORT INFORMATION
  Report Type: 
  Country: None (occurrence: None)
  Receive Date: 20061013
  Receipt Date: 20061002
  Transmission Date: 20070319
  Serious: Yes (Other)
  Sender: FDA-Public Use
  Company Number: 2006051270

PATIENT
  Age: 68 Year
  Sex: Male

DRUGS (13)
  1. LIPITOR [Suspect]
     Dosage: 10 MG (10 MG, 1 IN 1 D), ORAL
     Route: 048
     Dates: end: 20051114
  2. ADVAIR DISKUS (FLUTICASONE PROPIONATE, SALMETEROL XINAFOATE) [Concomitant]
  3. ALBUTEROL SULFATE [Concomitant]
  4. ALLOPURINOL [Concomitant]
  5. ATROVENT [Concomitant]
  6. K-DUR 10 [Concomitant]
  7. LASIX [Concomitant]
  8. MONOPRIL [Concomitant]
  9. MONOPRIL [Concomitant]
  10. TENORMIN [Concomitant]
  11. TYLENOL WITH CODEINE (CODEINE PHOSPHATE, PARACEMTAMOL) [Concomitant]
  12. ACETYLSALICYIC ACID (ACETYLSALICYLIC ACID) [Concomitant]
  13. MULTIVITAMIN [Concomitant]

REACTIONS (7)
  - ARTERIAL BYPASS OPERATION [None]
  - ATRIOVENTRICULAR BLOCK FIRST DEGREE [None]
  - BLOOD TRIGLYCERIDES INCREASED [None]
  - ELECTROCARDIOGRAM POOR R-WAVE PROGRESSION [None]
  - ELECTROCARDIOGRAM ST-T CHANGE [None]
  - LOW DENSITY LIPOPROTEIN DECREASED [None]
  - PLEURAL EFFUSION [None]
